FAERS Safety Report 18066376 (Version 2)
Quarter: 2020Q3

REPORT INFORMATION
  Report Type: Report from Study
  Country: CO (occurrence: CO)
  Receive Date: 20200724
  Receipt Date: 20200814
  Transmission Date: 20201103
  Serious: Yes (Other)
  Sender: FDA-Public Use
  Company Number: CO-ASTELLAS-2019US002919

PATIENT
  Age: 37 Year
  Sex: Male

DRUGS (11)
  1. MYCOPHENOLATE [Concomitant]
     Active Substance: MYCOPHENOLIC ACID
     Indication: RENAL TRANSPLANT
     Route: 048
     Dates: start: 20180721
  2. PREDNISOLONE. [Concomitant]
     Active Substance: PREDNISOLONE
     Indication: RENAL TRANSPLANT
     Route: 048
     Dates: start: 20180721
  3. TACROLIMUS. [Suspect]
     Active Substance: TACROLIMUS
     Indication: RENAL TRANSPLANT
     Dosage: 6 MG, ONCE DAILY (6 CAPSULES OF 1 MG)
     Route: 048
     Dates: start: 20180721
  4. TACROLIMUS. [Suspect]
     Active Substance: TACROLIMUS
     Dosage: 4 MG, ONCE DAILY (1 CAPSULE OF 3 MG AND 1 CAPSULE OF 1MG)
     Route: 048
     Dates: start: 20190801
  5. METOPROLOL. [Concomitant]
     Active Substance: METOPROLOL
     Indication: HYPERTENSION
     Route: 048
     Dates: start: 20180721
  6. TACROLIMUS. [Suspect]
     Active Substance: TACROLIMUS
     Dosage: 5 MG, ONCE DAILY (5 CAPSULES OF 1 MG)
     Route: 048
  7. TACROLIMUS. [Suspect]
     Active Substance: TACROLIMUS
     Dosage: 6 MG, ONCE DAILY (1 CAPSULES OF 5MG AND 1 CAPSULE OF 1MG)
     Route: 048
     Dates: start: 201812, end: 201906
  8. MYCOPHENOLATE [Concomitant]
     Active Substance: MYCOPHENOLIC ACID
     Dosage: 2 TABLETS, EVERY 12 HOURS
     Route: 048
  9. TACROLIMUS. [Suspect]
     Active Substance: TACROLIMUS
     Dosage: 7 MG, ONCE DAILY (1 CAPSULE OF 5 MG AND 2 CAPSULES OF 1 MG)
     Route: 048
     Dates: end: 201812
  10. TACROLIMUS. [Suspect]
     Active Substance: TACROLIMUS
     Dosage: 5 MG, ONCE DAILY (1 CAPSULE OF 5MG)
     Route: 048
     Dates: start: 201906, end: 20190731
  11. NIFEDIPINE. [Concomitant]
     Active Substance: NIFEDIPINE
     Indication: HYPERTENSION
     Route: 048
     Dates: start: 20180721

REACTIONS (8)
  - Secondary immunodeficiency [Not Recovered/Not Resolved]
  - Tremor [Not Recovered/Not Resolved]
  - Procedural pain [Not Recovered/Not Resolved]
  - Limb injury [Recovered/Resolved]
  - Abdominal pain [Recovered/Resolved]
  - Impaired healing [Recovered/Resolved]
  - Hypersensitivity [Recovering/Resolving]
  - Herpes virus infection [Recovered/Resolved]

NARRATIVE: CASE EVENT DATE: 201811
